FAERS Safety Report 6308923-3 (Version None)
Quarter: 2009Q3

REPORT INFORMATION
  Report Type: 
  Country: None (occurrence: None)
  Receive Date: 20090813
  Receipt Date: 20090522
  Transmission Date: 20100115
  Serious: No
  Sender: FDA-Public Use
  Company Number: US-ALLERGAN-0906891US

PATIENT
  Age: 79 Year
  Sex: Female

DRUGS (3)
  1. COMBIGAN [Suspect]
     Indication: GLAUCOMA
     Dosage: 1 GTT, UNKNOWN
     Route: 047
     Dates: start: 20090427
  2. COMBIGAN [Suspect]
     Dosage: 1 GTT, SINGLE
     Route: 047
     Dates: start: 20090515, end: 20090515
  3. RESTASIS [Concomitant]
     Indication: DRY EYE
     Dates: start: 20090515

REACTIONS (2)
  - EYE DISCHARGE [None]
  - EYE IRRITATION [None]
